FAERS Safety Report 18360536 (Version 1)
Quarter: 2020Q4

REPORT INFORMATION
  Report Type: Spontaneous
  Country: US (occurrence: US)
  Receive Date: 20201008
  Receipt Date: 20201008
  Transmission Date: 20210114
  Serious: No
  Sender: FDA-Public Use
  Company Number: US-INDIVIOR US-INDV-124645-2020

PATIENT
  Age: 57 Year
  Sex: Male

DRUGS (2)
  1. SUBOXONE [Suspect]
     Active Substance: BUPRENORPHINE HYDROCHLORIDE\NALOXONE HYDROCHLORIDE
     Dosage: UNK (TAKING ONE FILM AND CUTTING IT 4 TIMES TO LAST FOUR DAYS)
     Route: 060
  2. SUBOXONE [Suspect]
     Active Substance: BUPRENORPHINE HYDROCHLORIDE\NALOXONE HYDROCHLORIDE
     Indication: PAIN
     Dosage: UNK (TAKING 3 FILMS)
     Route: 060

REACTIONS (6)
  - Off label use [Not Recovered/Not Resolved]
  - Condition aggravated [Unknown]
  - Intentional underdose [Not Recovered/Not Resolved]
  - Osteoarthritis [Unknown]
  - No adverse event [Unknown]
  - Wrong technique in product usage process [Not Recovered/Not Resolved]
